FAERS Safety Report 11519187 (Version 2)
Quarter: 2017Q4

REPORT INFORMATION
  Report Type: Report from Study
  Country: GB (occurrence: GB)
  Receive Date: 20150917
  Receipt Date: 20171016
  Transmission Date: 20180320
  Serious: Yes (Death, Other)
  Sender: FDA-Public Use
  Company Number: GB-AMGEN-GBRNI2015095521

PATIENT
  Age: 90 Year
  Sex: Female

DRUGS (2)
  1. SULPHASALAZINE [Concomitant]
     Active Substance: SULFASALAZINE
     Indication: RHEUMATOID ARTHRITIS
     Dosage: UNK
  2. ETANERCEPT [Suspect]
     Active Substance: ETANERCEPT
     Indication: RHEUMATOID ARTHRITIS
     Dosage: 50 MG, UNK
     Route: 058
     Dates: start: 20130615, end: 20140908

REACTIONS (6)
  - Metastatic neoplasm [Fatal]
  - Adenocarcinoma of appendix [Fatal]
  - Ovarian abscess [Fatal]
  - Pyometra [Fatal]
  - Infected skin ulcer [Fatal]
  - Sepsis [Fatal]

NARRATIVE: CASE EVENT DATE: 20150610
